FAERS Safety Report 5708922-6 (Version None)
Quarter: 2008Q2

REPORT INFORMATION
  Report Type: 
  Country: None (occurrence: None)
  Receive Date: 20080416
  Receipt Date: 20080331
  Transmission Date: 20081010
  Serious: No
  Sender: FDA-Public Use
  Company Number: 002#2#2008-00197

PATIENT
  Age: 58 Year
  Sex: Female
  Weight: 90.7194 kg

DRUGS (8)
  1. NEUPRO [Suspect]
     Indication: MITOCHONDRIAL MYOPATHY
     Dosage: 2MG/24H, 1 IN 1 D, TRANSDERMAL; 4MG/24H, 1 IN 1 D, TRANSDERMAL; 6MG/24H, 1 IN 1 D, TRANSDERMAL
     Route: 062
     Dates: start: 20070101, end: 20070101
  2. NEUPRO [Suspect]
     Indication: MITOCHONDRIAL MYOPATHY
     Dosage: 2MG/24H, 1 IN 1 D, TRANSDERMAL; 4MG/24H, 1 IN 1 D, TRANSDERMAL; 6MG/24H, 1 IN 1 D, TRANSDERMAL
     Route: 062
     Dates: start: 20071001, end: 20070101
  3. NEUPRO [Suspect]
     Indication: MITOCHONDRIAL MYOPATHY
     Dosage: 2MG/24H, 1 IN 1 D, TRANSDERMAL; 4MG/24H, 1 IN 1 D, TRANSDERMAL; 6MG/24H, 1 IN 1 D, TRANSDERMAL
     Route: 062
     Dates: start: 20071001, end: 20070101
  4. NEUPRO [Suspect]
     Indication: MITOCHONDRIAL MYOPATHY
     Dosage: 2MG/24H, 1 IN 1 D, TRANSDERMAL; 4MG/24H, 1 IN 1 D, TRANSDERMAL; 6MG/24H, 1 IN 1 D, TRANSDERMAL
     Route: 062
     Dates: start: 20070101
  5. SOLU-MEDROL [Concomitant]
  6. ATENOLOL [Concomitant]
  7. HYDROCHLOROTHIAZIDE [Concomitant]
  8. VASELINE [Concomitant]

REACTIONS (12)
  - APPLICATION SITE BLEEDING [None]
  - APPLICATION SITE ERYTHEMA [None]
  - APPLICATION SITE PRURITUS [None]
  - DIARRHOEA [None]
  - MALAISE [None]
  - MUSCLE SPASMS [None]
  - ORAL INTAKE REDUCED [None]
  - PAIN IN EXTREMITY [None]
  - SCRATCH [None]
  - UNEVALUABLE EVENT [None]
  - VIRAL INFECTION [None]
  - VOMITING [None]
